FAERS Safety Report 19002742 (Version 8)
Quarter: 2022Q1

REPORT INFORMATION
  Report Type: Spontaneous
  Country: JP (occurrence: JP)
  Receive Date: 20210312
  Receipt Date: 20220131
  Transmission Date: 20220423
  Serious: Yes (Other)
  Sender: FDA-Public Use
  Company Number: JP-ONO-2021JP005810

PATIENT
  Age: 44 Year
  Sex: Female
  Weight: 48.2 kg

DRUGS (9)
  1. BRAFTOVI [Suspect]
     Active Substance: ENCORAFENIB
     Indication: Colon cancer
     Dosage: 300 MG, EVERYDAY
     Route: 048
     Dates: start: 20210128, end: 20210303
  2. BRAFTOVI [Suspect]
     Active Substance: ENCORAFENIB
     Dosage: 225 MG, EVERYDAY
     Route: 048
     Dates: start: 20210304, end: 20210311
  3. BRAFTOVI [Suspect]
     Active Substance: ENCORAFENIB
     Dosage: UNK UNK, EVERYDAY
     Route: 048
     Dates: start: 20210325, end: 20210415
  4. MEKTOVI [Suspect]
     Active Substance: BINIMETINIB
     Indication: Colon cancer
     Dosage: 45 MG, Q12H
     Route: 048
     Dates: start: 20210128, end: 20210303
  5. MEKTOVI [Suspect]
     Active Substance: BINIMETINIB
     Dosage: 30 MG, Q12H
     Route: 048
     Dates: start: 20210304, end: 20210311
  6. MEKTOVI [Suspect]
     Active Substance: BINIMETINIB
     Dosage: UNK UNK, EVERYDAY
     Route: 048
     Dates: start: 20210325, end: 20210415
  7. ERBITUX [Suspect]
     Active Substance: CETUXIMAB
     Indication: Colon cancer
     Dosage: 580 MG, QW
     Route: 065
     Dates: start: 20210128
  8. ERBITUX [Suspect]
     Active Substance: CETUXIMAB
     Dosage: 360 MG, QW
     Route: 065
     Dates: start: 20210204
  9. ERBITUX [Suspect]
     Active Substance: CETUXIMAB
     Dosage: UNK UNK, EVERYDAY
     Route: 065
     Dates: start: 20210318

REACTIONS (5)
  - Drug-induced liver injury [Recovered/Resolved]
  - Dermatitis acneiform [Recovered/Resolved]
  - Vision blurred [Recovered/Resolved]
  - Dry eye [Recovered/Resolved]
  - Dry eye [Unknown]

NARRATIVE: CASE EVENT DATE: 20210130
